FAERS Safety Report 9731811 (Version 1)
Quarter: 2013Q4

REPORT INFORMATION
  Report Type: Spontaneous
  Country: TR (occurrence: TR)
  Receive Date: 20131205
  Receipt Date: 20131205
  Transmission Date: 20140711
  Serious: Yes (Other)
  Sender: FDA-Public Use
  Company Number: TR-ACTELION-A-CH2013-92156

PATIENT
  Age: 70 Year
  Sex: Male

DRUGS (9)
  1. TRACLEER [Suspect]
     Indication: PULMONARY ARTERIAL HYPERTENSION
     Dosage: 125 MG, BID
     Route: 048
     Dates: start: 2010
  2. TRACLEER [Suspect]
     Dosage: 62.5 MG, BID
     Route: 048
     Dates: start: 20100212, end: 2010
  3. TRACLEER [Suspect]
     Dosage: UNK UNK, QD
     Route: 048
     Dates: end: 20131129
  4. APRANAX [Concomitant]
  5. VENTAVIS [Concomitant]
  6. AUGMENTIN [Concomitant]
  7. DELTACORTRIL [Concomitant]
  8. PREDNOL [Concomitant]
  9. ENDOXAN [Concomitant]

REACTIONS (2)
  - Epistaxis [Not Recovered/Not Resolved]
  - Muscle haemorrhage [Not Recovered/Not Resolved]
